FAERS Safety Report 9482285 (Version 21)
Quarter: 2015Q1

REPORT INFORMATION
  Report Type: Report from Study
  Country: CA (occurrence: CA)
  Receive Date: 20130828
  Receipt Date: 20150317
  Transmission Date: 20150721
  Serious: Yes (Hospitalization, Other)
  Sender: FDA-Public Use
  Company Number: CA-ROCHE-1228723

PATIENT
  Age: 34 Year
  Sex: Female
  Weight: 62.2 kg

DRUGS (5)
  1. ACTEMRA [Suspect]
     Active Substance: TOCILIZUMAB
     Indication: RHEUMATOID ARTHRITIS
     Route: 042
     Dates: start: 20130327
  2. ACTEMRA [Suspect]
     Active Substance: TOCILIZUMAB
     Route: 042
     Dates: start: 20150122
  3. ACTEMRA [Suspect]
     Active Substance: TOCILIZUMAB
     Route: 042
     Dates: start: 20140611
  4. FOLIC ACID. [Concomitant]
     Active Substance: FOLIC ACID
  5. ACTEMRA [Suspect]
     Active Substance: TOCILIZUMAB
     Route: 042
     Dates: start: 20130501

REACTIONS (23)
  - Inflammation [Not Recovered/Not Resolved]
  - Herpes virus infection [Unknown]
  - Weight fluctuation [Unknown]
  - Ovarian cyst ruptured [Unknown]
  - Influenza like illness [Recovering/Resolving]
  - Bronchitis [Unknown]
  - Drug dose omission [Unknown]
  - Rheumatoid arthritis [Unknown]
  - Uterine spasm [Recovered/Resolved]
  - Hypotension [Not Recovered/Not Resolved]
  - Nasopharyngitis [Not Recovered/Not Resolved]
  - Musculoskeletal discomfort [Recovered/Resolved]
  - Rash generalised [Unknown]
  - Hyperaesthesia [Not Recovered/Not Resolved]
  - Laryngitis [Unknown]
  - Vaginal infection [Unknown]
  - Fall [Unknown]
  - Contusion [Unknown]
  - Infusion related reaction [Unknown]
  - Upper respiratory tract infection [Recovered/Resolved]
  - Tonsillitis [Unknown]
  - Arthralgia [Unknown]
  - Nodule [Unknown]

NARRATIVE: CASE EVENT DATE: 201305
